FAERS Safety Report 17730098 (Version 1)
Quarter: 2020Q2

REPORT INFORMATION
  Report Type: Spontaneous
  Country: US (occurrence: US)
  Receive Date: 20200430
  Receipt Date: 20200430
  Transmission Date: 20200714
  Serious: Yes (Hospitalization)
  Sender: FDA-Public Use
  Company Number: None

PATIENT
  Age: 59 Year
  Sex: Female
  Weight: 89.36 kg

DRUGS (17)
  1. ERGOCALCIFEROL 50,000 UNITS [Concomitant]
  2. ASPIRIN 81MG [Concomitant]
     Active Substance: ASPIRIN
  3. FIBER SELECT GUMMIES [Concomitant]
  4. PRAZOSIN 2MG [Concomitant]
     Active Substance: PRAZOSIN
  5. VITAMIN E BLEND 400 UNITS [Concomitant]
  6. PERCOCET 7.5325MG [Concomitant]
  7. FLUOXETINE [Concomitant]
     Active Substance: FLUOXETINE HYDROCHLORIDE
  8. SEROQUEL [Concomitant]
     Active Substance: QUETIAPINE FUMARATE
  9. VITAMIN C 500MG [Concomitant]
  10. FISH OIL +D3 [Concomitant]
  11. MULTIVITAMIN [Concomitant]
     Active Substance: VITAMINS
  12. IORAZEPAM 2MG [Concomitant]
  13. MIRTAZAPINE15MG [Concomitant]
  14. PROPRANOLOL 60MG [Concomitant]
     Active Substance: PROPRANOLOL HYDROCHLORIDE
  15. KISQALI [Suspect]
     Active Substance: RIBOCICLIB
     Indication: BREAST CANCER
     Route: 048
     Dates: start: 20190329, end: 20200430
  16. B COMPLETE [Concomitant]
  17. XGEVA [Concomitant]
     Active Substance: DENOSUMAB

REACTIONS (1)
  - Disease progression [None]

NARRATIVE: CASE EVENT DATE: 20200430
